FAERS Safety Report 4636566-6 (Version None)
Quarter: 2005Q2

REPORT INFORMATION
  Report Type: 
  Country: None (occurrence: None)
  Receive Date: 20050415
  Receipt Date: 20050120
  Transmission Date: 20051028
  Serious: Yes (Hospitalization, Other)
  Sender: FDA-Public Use
  Company Number: PHBS2005JP01202

PATIENT
  Age: 55 Year
  Sex: Female
  Weight: 63 kg

DRUGS (8)
  1. NEORAL [Suspect]
     Indication: STEM CELL TRANSPLANT
     Dosage: 200 MG/D
     Route: 048
     Dates: start: 20040410, end: 20041124
  2. NEORAL [Suspect]
     Dosage: 150 MG/D
     Route: 048
     Dates: start: 20041125, end: 20041222
  3. NEORAL [Suspect]
     Dosage: 200 MG/D
     Route: 048
     Dates: start: 20041223, end: 20050116
  4. NEORAL [Suspect]
     Route: 048
     Dates: start: 20050101, end: 20050101
  5. NEORAL [Suspect]
     Dosage: 320 MG/D
     Route: 048
     Dates: start: 20040212, end: 20040101
  6. NEORAL [Suspect]
     Dosage: 80 MG/D
     Route: 048
     Dates: start: 20040101, end: 20040101
  7. SANDIMMUNE [Concomitant]
     Indication: STEM CELL TRANSPLANT
     Dosage: 159 MG/D
     Route: 041
     Dates: start: 20040211, end: 20040211
  8. PROGRAF [Concomitant]
     Indication: STEM CELL TRANSPLANT
     Dates: start: 20050101

REACTIONS (14)
  - CYTOMEGALOVIRUS ENTEROCOLITIS [None]
  - EPISTAXIS [None]
  - GASTROINTESTINAL HAEMORRHAGE [None]
  - GRAFT VERSUS HOST DISEASE [None]
  - HAEMATOCRIT DECREASED [None]
  - HAEMOGLOBIN DECREASED [None]
  - INTESTINAL ULCER [None]
  - LYMPHOCYTE COUNT INCREASED [None]
  - MELAENA [None]
  - MONOCYTE COUNT DECREASED [None]
  - NEUTROPHIL COUNT DECREASED [None]
  - PANCYTOPENIA [None]
  - PLATELET COUNT DECREASED [None]
  - WHITE BLOOD CELL COUNT DECREASED [None]
